FAERS Safety Report 25876127 (Version 6)
Quarter: 2025Q4

REPORT INFORMATION
  Report Type: Spontaneous
  Country: CA (occurrence: CA)
  Receive Date: 20251003
  Receipt Date: 20251029
  Transmission Date: 20260118
  Serious: Yes (Death, Other)
  Sender: KARYOPHARM THERAPEUTICS
  Company Number: CA-KARYOPHARM-2025KPT100764

PATIENT

DRUGS (3)
  1. SELINEXOR [Suspect]
     Active Substance: SELINEXOR
     Indication: Plasma cell myeloma
     Dosage: 80 MILLIGRAMS EVERY 1 WEEK
     Route: 048
     Dates: start: 20250915, end: 202510
  2. DEXAMETHASONE [Concomitant]
     Active Substance: DEXAMETHASONE
     Indication: Plasma cell myeloma
  3. BORTEZOMIB [Concomitant]
     Active Substance: BORTEZOMIB
     Indication: Plasma cell myeloma

REACTIONS (4)
  - Death [Fatal]
  - Platelet count decreased [Unknown]
  - Haemoglobin decreased [Unknown]
  - Product use issue [Unknown]

NARRATIVE: CASE EVENT DATE: 20250101
